FAERS Safety Report 6512003-1 (Version None)
Quarter: 2009Q4

REPORT INFORMATION
  Report Type: 
  Country: None (occurrence: None)
  Receive Date: 20091222
  Receipt Date: 20090514
  Transmission Date: 20100525
  Serious: No
  Sender: FDA-Public Use
  Company Number: US-ASTRAZENECA-2009UW12443

PATIENT
  Age: 59 Year
  Sex: Female
  Weight: 77.1 kg

DRUGS (8)
  1. CRESTOR [Suspect]
     Indication: BLOOD CHOLESTEROL INCREASED
     Route: 048
  2. ACTOS [Concomitant]
     Indication: DIABETES MELLITUS
  3. ALLOPURINOL [Concomitant]
     Indication: GOUT
  4. BABY ASPIRIN [Concomitant]
     Indication: CARDIAC DISORDER
  5. COLCHICINE [Concomitant]
     Indication: GOUT
  6. DIOVAN HCT [Concomitant]
     Indication: HYPERTENSION
  7. INDOMETHACIN [Concomitant]
     Indication: GOUT
  8. WELLBUTRIN [Concomitant]

REACTIONS (1)
  - ALOPECIA [None]
